FAERS Safety Report 18864729 (Version 1)
Quarter: 2021Q1

REPORT INFORMATION
  Report Type: Spontaneous
  Country: US (occurrence: US)
  Receive Date: 20210208
  Receipt Date: 20210208
  Transmission Date: 20210420
  Serious: Yes (Other)
  Sender: FDA-Public Use
  Company Number: US-BAYER-2021-048804

PATIENT
  Age: 75 Year
  Sex: Female

DRUGS (5)
  1. AFRIN ORIGINAL [Suspect]
     Active Substance: OXYMETAZOLINE HYDROCHLORIDE
     Indication: EPISTAXIS
     Dosage: UNK
     Dates: start: 2017
  2. ATENOLOL. [Concomitant]
     Active Substance: ATENOLOL
     Dosage: UNK
  3. VITAMIN D [VITAMIN D NOS] [Concomitant]
     Active Substance: VITAMIN D NOS
     Dosage: UNK
  4. XARELTO [Concomitant]
     Active Substance: RIVAROXABAN
     Dosage: UNK
  5. TORSEMIDE. [Concomitant]
     Active Substance: TORSEMIDE
     Dosage: UNK

REACTIONS (4)
  - Drug dependence [Unknown]
  - Off label use [Unknown]
  - Product use in unapproved indication [Unknown]
  - Wrong technique in product usage process [Unknown]
